FAERS Safety Report 6409600-0 (Version None)
Quarter: 2009Q4

REPORT INFORMATION
  Report Type: 
  Country: None (occurrence: None)
  Receive Date: 20091022
  Receipt Date: 20091015
  Transmission Date: 20100525
  Serious: Yes (Other)
  Sender: FDA-Public Use
  Company Number: BR-AVENTIS-200921123GDDC

PATIENT
  Sex: Female

DRUGS (2)
  1. OPTICLIK (INSULIN INJECTION PEN) [Suspect]
  2. INSULIN NOS [Suspect]

REACTIONS (5)
  - DEVICE ELECTRICAL FINDING [None]
  - DEVICE MALFUNCTION [None]
  - INCORRECT PRODUCT STORAGE [None]
  - NO ADVERSE EVENT [None]
  - PRODUCT QUALITY ISSUE [None]
